FAERS Safety Report 6329126-2 (Version None)
Quarter: 2009Q3

REPORT INFORMATION
  Report Type: 
  Country: None (occurrence: None)
  Receive Date: 20090826
  Receipt Date: 20090813
  Transmission Date: 20100115
  Serious: Yes (Other)
  Sender: FDA-Public Use
  Company Number: US-ELI_LILLY_AND_COMPANY-US200908003217

PATIENT
  Sex: Female

DRUGS (2)
  1. CYMBALTA [Suspect]
     Indication: PAIN MANAGEMENT
     Dosage: 30 MG, DAILY (1/D)
     Dates: start: 20090201, end: 20090301
  2. CYMBALTA [Suspect]
     Dosage: 60 MG, DAILY (1/D)
     Dates: start: 20090301

REACTIONS (4)
  - DERMATITIS BULLOUS [None]
  - DRUG HYPERSENSITIVITY [None]
  - OFF LABEL USE [None]
  - RASH [None]
